FAERS Safety Report 10386166 (Version 1)
Quarter: 2014Q1

REPORT INFORMATION
  Report Type: Spontaneous
  Country: US (occurrence: None)
  Receive Date: 20140306
  Receipt Date: 20140306
  Transmission Date: 20141002
  Serious: Yes (Other)
  Sender: FDA-Public Use
  Company Number: 163-21880-13083136

PATIENT
  Age: 64 Year
  Sex: Female

DRUGS (7)
  1. REVLIMID [Suspect]
     Indication: MYELODYSPLASTIC SYNDROME
     Dosage: 28 IN 28 D
     Route: 048
     Dates: start: 20130626
  2. METOPROLOL [Concomitant]
  3. ASA (ACETYLSALICYLIC ACID) [Concomitant]
  4. LISINOPRIL [Concomitant]
  5. FERROUS GLUCONATE [Concomitant]
  6. PREDNISONE [Concomitant]
  7. PANTOPRAZOLE [Concomitant]

REACTIONS (1)
  - Neutropenia [None]
